FAERS Safety Report 4597714-X (Version None)
Quarter: 2005Q1

REPORT INFORMATION
  Report Type: 
  Country: None (occurrence: None)
  Receive Date: 20050125
  Receipt Date: 20040819
  Transmission Date: 20050727
  Serious: No
  Sender: FDA-Public Use
  Company Number: USA040875962

PATIENT
  Age: 70 Year
  Sex: Female
  Weight: 57 kg

DRUGS (3)
  1. FORTEO [Suspect]
     Indication: OSTEOPOROSIS
     Dosage: 20 UG/1 DAY
     Dates: start: 20040701
  2. TUMS (CALCIUM CARBONATE) [Concomitant]
  3. MULTI-VITAMIN [Concomitant]

REACTIONS (4)
  - CHEST PAIN [None]
  - INJECTION SITE REACTION [None]
  - PALPITATIONS [None]
  - SCAB [None]
